FAERS Safety Report 14606714 (Version 3)
Quarter: 2018Q2

REPORT INFORMATION
  Report Type: Report from Study
  Country: US (occurrence: US)
  Receive Date: 20180307
  Receipt Date: 20180402
  Transmission Date: 20180711
  Serious: Yes (Other)
  Sender: FDA-Public Use
  Company Number: US-AMGEN-USASL2018030157

PATIENT
  Age: 32 Year
  Sex: Male

DRUGS (3)
  1. TORSEMIDE. [Concomitant]
     Active Substance: TORSEMIDE
     Dosage: 20 MG, UNK
  2. METOPROLOL. [Concomitant]
     Active Substance: METOPROLOL
     Dosage: 50 MG, UNK
  3. ENBREL [Suspect]
     Active Substance: ETANERCEPT
     Indication: ANKYLOSING SPONDYLITIS
     Dosage: 50 MG, QWK
     Route: 065
     Dates: end: 201803

REACTIONS (7)
  - Epistaxis [Recovering/Resolving]
  - Dyspnoea [Unknown]
  - Injection site bruising [Unknown]
  - Injection site pain [Unknown]
  - Constipation [Unknown]
  - Migraine [Recovering/Resolving]
  - Sleep disorder due to a general medical condition [Recovering/Resolving]
